FAERS Safety Report 9960321 (Version 2)
Quarter: 2014Q1

REPORT INFORMATION
  Report Type: Spontaneous
  Country: US (occurrence: US)
  Receive Date: 20140305
  Receipt Date: 20140305
  Transmission Date: 20141002
  Serious: Yes (Hospitalization, Other)
  Sender: FDA-Public Use
  Company Number: US-JNJFOC-20140204049

PATIENT
  Age: 72 Year
  Sex: Male
  Weight: 95.71 kg

DRUGS (3)
  1. XARELTO [Suspect]
     Indication: PULMONARY EMBOLISM
     Route: 048
     Dates: start: 20140116
  2. CLOPIDOGREL [Suspect]
     Indication: ANTIPLATELET THERAPY
     Route: 065
  3. DULOXETINE [Concomitant]
     Route: 065

REACTIONS (5)
  - Epistaxis [Recovered/Resolved]
  - Blood test abnormal [Recovering/Resolving]
  - Mass [Unknown]
  - Activated partial thromboplastin time prolonged [Unknown]
  - Sinusitis [Unknown]
